FAERS Safety Report 17424503 (Version 1)
Quarter: 2020Q1

REPORT INFORMATION
  Report Type: Other
  Country: PT (occurrence: PT)
  Receive Date: 20200217
  Receipt Date: 20200217
  Transmission Date: 20200409
  Serious: Yes (Other)
  Sender: FDA-Public Use
  Company Number: PT-CELLTRION INC.-2020PT018960

PATIENT

DRUGS (4)
  1. REMSIMA [Suspect]
     Active Substance: INFLIXIMAB
     Dosage: UNK
     Route: 042
     Dates: start: 201809, end: 20190130
  2. REMSIMA [Suspect]
     Active Substance: INFLIXIMAB
     Dosage: UNK
     Route: 042
     Dates: start: 201809, end: 20190130
  3. REMSIMA [Suspect]
     Active Substance: INFLIXIMAB
     Indication: CROHN^S DISEASE
     Dosage: UNK
     Route: 042
     Dates: start: 201809, end: 20190130
  4. REMSIMA [Suspect]
     Active Substance: INFLIXIMAB
     Dosage: UNK
     Route: 042
     Dates: start: 201809, end: 20190130

REACTIONS (6)
  - Vulvovaginal candidiasis [Unknown]
  - Anal abscess [Unknown]
  - Dermoid cyst [Unknown]
  - Cystitis [Unknown]
  - Tonsillitis [Unknown]
  - Drug specific antibody [Unknown]

NARRATIVE: CASE EVENT DATE: 201809
